FAERS Safety Report 11593636 (Version 1)
Quarter: 2015Q4

REPORT INFORMATION
  Report Type: Spontaneous
  Country: US (occurrence: US)
  Receive Date: 20151005
  Receipt Date: 20151005
  Transmission Date: 20160304
  Serious: No
  Sender: FDA-Public Use
  Company Number: US-BAXTER-2015BAX052177

PATIENT
  Sex: Female
  Weight: 52.21 kg

DRUGS (2)
  1. FLUCONAZOLE INJECTION, USP [Suspect]
     Active Substance: FLUCONAZOLE
     Indication: COCCIDIOIDOMYCOSIS
     Route: 065
  2. VFEND [Suspect]
     Active Substance: VORICONAZOLE
     Indication: COCCIDIOIDOMYCOSIS
     Route: 048
     Dates: start: 201504, end: 201506

REACTIONS (7)
  - Drug effect incomplete [Unknown]
  - Rectal tenesmus [Unknown]
  - Constipation [Unknown]
  - Rash generalised [Unknown]
  - Functional gastrointestinal disorder [Unknown]
  - Skin exfoliation [Unknown]
  - Rash [Unknown]
